FAERS Safety Report 10392544 (Version 2)
Quarter: 2014Q3

REPORT INFORMATION
  Report Type: Spontaneous
  Country: AT (occurrence: AT)
  Receive Date: 20140819
  Receipt Date: 20140904
  Transmission Date: 20150326
  Serious: Yes (Death, Life-Threatening, Hospitalization, Other)
  Sender: FDA-Public Use
  Company Number: PHHY2014AT100876

PATIENT
  Age: 57 Year
  Sex: Male

DRUGS (13)
  1. MIRTABENE [Concomitant]
     Active Substance: MIRTAZAPINE
     Dosage: 30 MG, UNK
     Route: 048
     Dates: start: 20130724, end: 20130724
  2. LEPONEX [Suspect]
     Active Substance: CLOZAPINE
     Dosage: 50 MG, UNK
     Route: 048
     Dates: start: 20130724, end: 20130724
  3. MIRTABENE [Concomitant]
     Active Substance: MIRTAZAPINE
     Dosage: 60 MG, UNK
     Route: 048
     Dates: start: 20130621
  4. ALNA [Concomitant]
     Active Substance: TAMSULOSIN HYDROCHLORIDE
     Dosage: 0.4 MG, UNK
     Route: 048
     Dates: end: 20130724
  5. QUILONORM//LITHIUM ACETATE [Concomitant]
     Dosage: 1350 MG, UNK
     Route: 048
     Dates: end: 20130621
  6. TRUXAL [Suspect]
     Active Substance: CHLORPROTHIXENE
     Indication: NEUROLEPTIC MALIGNANT SYNDROME
     Dosage: 100 MG, UNK
     Dates: end: 20130621
  7. LEPONEX [Suspect]
     Active Substance: CLOZAPINE
     Dosage: UNK (50-250 MG)
     Route: 048
     Dates: start: 20130706, end: 20130723
  8. AMLODIPINE BESILATE [Concomitant]
     Active Substance: AMLODIPINE BESYLATE
     Dosage: 10 MG, UNK
     Route: 048
     Dates: end: 20130725
  9. INDOCID [Concomitant]
     Active Substance: INDOMETHACIN
     Dosage: 75 MG, UNK
     Route: 048
     Dates: end: 20130725
  10. LEPONEX [Suspect]
     Active Substance: CLOZAPINE
     Indication: NEUROLEPTIC MALIGNANT SYNDROME
     Dosage: 200 MG, UNK
     Route: 048
     Dates: end: 20130621
  11. TRUXAL [Suspect]
     Active Substance: CHLORPROTHIXENE
     Dosage: 50 MG, UNK
     Route: 048
     Dates: start: 20130724, end: 20130725
  12. MODURETIC 5-50 [Concomitant]
     Active Substance: AMILORIDE HYDROCHLORIDE\HYDROCHLOROTHIAZIDE
     Dosage: UNK (5/50 MG)
     Route: 048
     Dates: end: 20130725
  13. GLUCOPHAGE [Concomitant]
     Active Substance: METFORMIN HYDROCHLORIDE
     Dosage: 500 MG, UNK
     Route: 048
     Dates: end: 20130725

REACTIONS (7)
  - Neuroleptic malignant syndrome [Unknown]
  - General physical health deterioration [Unknown]
  - Temperature regulation disorder [Unknown]
  - Bronchopneumonia [Fatal]
  - Tracheobronchitis [Unknown]
  - Heat stroke [Unknown]
  - Hyperthermia [Unknown]

NARRATIVE: CASE EVENT DATE: 2013
